FAERS Safety Report 19997033 (Version 1)
Quarter: 2021Q4

REPORT INFORMATION
  Report Type: Spontaneous
  Country: US (occurrence: US)
  Receive Date: 20211026
  Receipt Date: 20211026
  Transmission Date: 20220303
  Serious: No
  Sender: FDA-Public Use
  Company Number: None

PATIENT
  Age: 47 Year
  Sex: Female
  Weight: 103.5 kg

DRUGS (2)
  1. ELETRIPTAN HYDROBROMIDE [Suspect]
     Active Substance: ELETRIPTAN HYDROBROMIDE
     Indication: Migraine
     Dosage: ?          QUANTITY:9 TABLET(S);
     Route: 048
  2. RELPAX [Suspect]
     Active Substance: ELETRIPTAN HYDROBROMIDE
     Indication: Migraine
     Dosage: ?          QUANTITY:12 TABLET(S);
     Route: 048

REACTIONS (1)
  - Pollakiuria [None]

NARRATIVE: CASE EVENT DATE: 20211026
